FAERS Safety Report 10744182 (Version 1)
Quarter: 2015Q1

REPORT INFORMATION
  Report Type: Spontaneous
  Country: US (occurrence: None)
  Receive Date: 20150126
  Receipt Date: 20150126
  Transmission Date: 20150721
  Serious: Yes (Other)
  Sender: FDA-Public Use
  Company Number: None

PATIENT
  Age: 56 Year
  Sex: Female
  Weight: 140.62 kg

DRUGS (1)
  1. LEVAQUIN [Suspect]
     Active Substance: LEVOFLOXACIN
     Indication: SINUSITIS
     Dosage: 1
     Route: 048
     Dates: start: 20141125, end: 20141212

REACTIONS (5)
  - Abasia [None]
  - Arthropathy [None]
  - Joint swelling [None]
  - Mass [None]
  - Balance disorder [None]

NARRATIVE: CASE EVENT DATE: 20141221
